FAERS Safety Report 9702231 (Version 1)
Quarter: 2013Q4

REPORT INFORMATION
  Report Type: Spontaneous
  Country: TR (occurrence: TR)
  Receive Date: 20131121
  Receipt Date: 20131121
  Transmission Date: 20140711
  Serious: Yes (Other)
  Sender: FDA-Public Use
  Company Number: TR-MYLANLABS-2013S1025426

PATIENT
  Age: 25 Year
  Sex: Female

DRUGS (1)
  1. ISOTRETINOIN [Suspect]
     Indication: ACNE CYSTIC
     Dosage: 30 MG/DAY (0.5 MG/KG)
     Route: 048

REACTIONS (5)
  - Vaginal haemorrhage [Recovering/Resolving]
  - Dyspareunia [Recovering/Resolving]
  - Xerosis [Recovering/Resolving]
  - Cheilitis [Recovering/Resolving]
  - Dry eye [Recovering/Resolving]
